FAERS Safety Report 8530903-8 (Version None)
Quarter: 2012Q3

REPORT INFORMATION
  Report Type: 
  Country: None (occurrence: None)
  Receive Date: 20120723
  Receipt Date: 20120716
  Transmission Date: 20120928
  Serious: Yes (Other)
  Sender: FDA-Public Use
  Company Number: US-ROCHE-1088523

PATIENT
  Sex: Male

DRUGS (4)
  1. ACCUTANE [Suspect]
     Dates: start: 19980101
  2. ACCUTANE [Suspect]
     Indication: PRODUCT USED FOR UNKNOWN INDICATION
     Dates: start: 19900101
  3. ACCUTANE [Suspect]
     Dates: start: 19940101
  4. ACCUTANE [Suspect]
     Dates: start: 19990101

REACTIONS (2)
  - CROHN'S DISEASE [None]
  - ANXIETY [None]
